FAERS Safety Report 21779780 (Version 2)
Quarter: 2023Q2

REPORT INFORMATION
  Report Type: Spontaneous
  Country: CA (occurrence: CA)
  Receive Date: 20221226
  Receipt Date: 20230408
  Transmission Date: 20230722
  Serious: Yes (Other)
  Sender: FDA-Public Use
  Company Number: CA-ABBVIE-4248850

PATIENT
  Age: 48 Year
  Sex: Female

DRUGS (7)
  1. HUMIRA [Suspect]
     Active Substance: ADALIMUMAB
     Indication: Product used for unknown indication
     Route: 058
     Dates: start: 20221124
  2. LYRICA [Concomitant]
     Active Substance: PREGABALIN
     Indication: Product used for unknown indication
  3. XELJANZ XR [Suspect]
     Active Substance: TOFACITINIB CITRATE
     Indication: Rheumatoid arthritis
     Route: 048
     Dates: start: 202002, end: 202211
  4. CELEBREX [Concomitant]
     Active Substance: CELECOXIB
     Indication: Product used for unknown indication
  5. LEFLUNOMIDE [Concomitant]
     Active Substance: LEFLUNOMIDE
     Indication: Product used for unknown indication
  6. ARAVA [Concomitant]
     Active Substance: LEFLUNOMIDE
     Indication: Product used for unknown indication
  7. AMITRIPTYLINE [Concomitant]
     Active Substance: AMITRIPTYLINE
     Indication: Product used for unknown indication
     Dates: start: 20211112

REACTIONS (23)
  - Rheumatoid arthritis [Unknown]
  - Oedema peripheral [Unknown]
  - Oedema [Not Recovered/Not Resolved]
  - Periarthritis [Unknown]
  - Pain [Unknown]
  - Burning sensation [Unknown]
  - Peripheral swelling [Not Recovered/Not Resolved]
  - Generalised oedema [Unknown]
  - Fibromyalgia [Unknown]
  - Joint effusion [Unknown]
  - Drug ineffective [Unknown]
  - Fluid retention [Unknown]
  - Pain [Unknown]
  - Nerve compression [Unknown]
  - Mobility decreased [Unknown]
  - Localised oedema [Unknown]
  - Fluid retention [Not Recovered/Not Resolved]
  - Myalgia [Unknown]
  - Drug ineffective [Unknown]
  - Inflammation [Unknown]
  - Sciatic nerve injury [Unknown]
  - Sciatic nerve neuropathy [Unknown]
  - Movement disorder [Unknown]
